FAERS Safety Report 5066955-X (Version None)
Quarter: 2006Q3

REPORT INFORMATION
  Report Type: 
  Country: None (occurrence: None)
  Receive Date: 20060726
  Receipt Date: 20060714
  Transmission Date: 20061208
  Serious: Yes (Death, Other)
  Sender: FDA-Public Use
  Company Number: 2006088101

PATIENT
  Sex: 0

DRUGS (1)
  1. LIPITOR [Suspect]
     Indication: DRUG USE FOR UNKNOWN INDICATION
     Dosage: 20 MG
     Dates: end: 20060101

REACTIONS (6)
  - BLOOD CREATININE INCREASED [None]
  - DYSPNOEA [None]
  - OEDEMA [None]
  - ORTHOPNOEA [None]
  - TACHYCARDIA [None]
  - VENTRICULAR FIBRILLATION [None]
